FAERS Safety Report 8637597 (Version 2)
Quarter: 2012Q4

REPORT INFORMATION
  Report Type: 
  Country: FR (occurrence: FR)
  Receive Date: 20120627
  Receipt Date: 20121023
  Transmission Date: 20130627
  Serious: Yes (Other)
  Sender: FDA-Public Use
  Company Number: PHHY2012FR054506

PATIENT
  Age: 67 Year
  Sex: Female

DRUGS (2)
  1. TEGRETOL [Suspect]
     Indication: FACIAL NEURALGIA
     Dosage: 300 mg, daily
  2. RIVOTRIL [Concomitant]

REACTIONS (2)
  - Osteoarthritis [Unknown]
  - Somnolence [Unknown]
